FAERS Safety Report 5059842-4 (Version None)
Quarter: 2006Q3

REPORT INFORMATION
  Report Type: 
  Country: None (occurrence: None)
  Receive Date: 20060718
  Receipt Date: 20060705
  Transmission Date: 20061208
  Serious: Yes (Hospitalization)
  Sender: FDA-Public Use
  Company Number: 2006BI007101

PATIENT
  Age: 46 Year
  Sex: Female

DRUGS (5)
  1. AVONEX [Suspect]
     Indication: MULTIPLE SCLEROSIS
     Dosage: 30 UG QW IM
     Route: 030
     Dates: start: 20031001
  2. CYMBALTA [Concomitant]
  3. PRIMIDONE [Concomitant]
  4. GABAPENTIN [Concomitant]
  5. SEROQUEL [Concomitant]

REACTIONS (1)
  - UTERINE LEIOMYOMA [None]
